FAERS Safety Report 8613409-7 (Version None)
Quarter: 2012Q3

REPORT INFORMATION
  Report Type: 
  Country: None (occurrence: None)
  Receive Date: 20120822
  Receipt Date: 20120807
  Transmission Date: 20120928
  Serious: Yes (Hospitalization)
  Sender: FDA-Public Use
  Company Number: JP-009507513-1208JPN004269

PATIENT

DRUGS (13)
  1. REBETOL [Suspect]
     Indication: HEPATITIS C
     Dosage: 600 MG, QD
     Route: 048
     Dates: start: 20120207, end: 20120226
  2. REBETOL [Suspect]
     Dosage: 200 MG, QD
     Route: 048
     Dates: start: 20120227, end: 20120327
  3. REBETOL [Suspect]
     Dosage: 400 MG, QD
     Route: 048
     Dates: start: 20120328, end: 20120508
  4. CELESTAMINE COMBINATION [Concomitant]
     Indication: PROPHYLAXIS
     Dosage: 2 DF, QD
     Route: 048
     Dates: start: 20120207
  5. LOXONIN [Concomitant]
     Indication: PROPHYLAXIS
     Dosage: 1 DF, PRN
     Route: 048
     Dates: start: 20120207
  6. FAMOTIDINE [Concomitant]
     Indication: PROPHYLAXIS
     Dosage: 40 MG, QD
     Route: 048
     Dates: start: 20120207
  7. CELESTAMINE COMBINATION [Concomitant]
     Dosage: 2 DF, QD
     Route: 048
     Dates: start: 20120501
  8. LOXONIN [Concomitant]
     Dosage: 1 DF, QD
     Route: 048
     Dates: end: 20120724
  9. REBETOL [Suspect]
     Dosage: 400 MG, QD
     Route: 048
     Dates: start: 20120523, end: 20120724
  10. TELAVIC [Suspect]
     Indication: HEPATITIS C
     Dosage: 2250 MG, QD
     Route: 048
     Dates: start: 20120207, end: 20120502
  11. PEG-INTRON [Suspect]
     Indication: HEPATITIS C
     Dosage: 1 MICROGRAM PER KILOGRAM
     Route: 058
     Dates: start: 20120207, end: 20120508
  12. ALLOPURINOL [Concomitant]
     Indication: BLOOD URIC ACID INCREASED
     Dosage: 1 DF, QD
     Route: 048
     Dates: end: 20120508
  13. PEG-INTRON [Suspect]
     Dosage: 1.5 MICROGRAM PER KILOGRAM
     Route: 058
     Dates: start: 20120523, end: 20120718

REACTIONS (1)
  - PYREXIA [None]
